FAERS Safety Report 7866863-2 (Version None)
Quarter: 2011Q4

REPORT INFORMATION
  Report Type: 
  Country: None (occurrence: None)
  Receive Date: 20111028
  Receipt Date: 20111014
  Transmission Date: 20120403
  Serious: Yes (Other)
  Sender: FDA-Public Use
  Company Number: DE-ROCHE-323839

PATIENT
  Sex: Female

DRUGS (1)
  1. IBANDRONATE SODIUM [Suspect]
     Indication: PRODUCT USED FOR UNKNOWN INDICATION
     Dosage: FORM STRENGTH=2 MG/2ML
     Route: 042

REACTIONS (5)
  - ARTHRALGIA [None]
  - MYALGIA [None]
  - CHILLS [None]
  - PYREXIA [None]
  - ADVERSE DRUG REACTION [None]
